FAERS Safety Report 4627049-8 (Version None)
Quarter: 2005Q1

REPORT INFORMATION
  Report Type: 
  Country: None (occurrence: None)
  Receive Date: 20050331
  Receipt Date: 20050318
  Transmission Date: 20050727
  Serious: Yes (Other)
  Sender: FDA-Public Use
  Company Number: 2005015022

PATIENT
  Age: 67 Year
  Sex: Female
  Weight: 81.6475 kg

DRUGS (7)
  1. CELEBREX [Suspect]
     Indication: OSTEOARTHRITIS
     Dosage: 200 MG (200 MG, 1 IN 1 D), ORAL
     Route: 048
     Dates: start: 19991221
  2. BEXTRA [Suspect]
     Indication: ARTHRALGIA
     Dosage: 20 MG (10 MG, 1 IN 1 D), ORAL
     Route: 048
     Dates: end: 20040101
  3. SIMVASTATIN [Concomitant]
  4. ESOMEPRAZOLE (ESOMEPRAZOLE) [Concomitant]
  5. CALCITONIN SALMON (CALCITONIN, SALMON) [Concomitant]
  6. ASPIRIN [Concomitant]
  7. CARISOPRODOL [Concomitant]

REACTIONS (9)
  - ARTHRITIS [None]
  - ARTHROPATHY [None]
  - CARDIAC VALVE DISEASE [None]
  - CHEST PAIN [None]
  - CHEST WALL PAIN [None]
  - DRUG INEFFECTIVE [None]
  - GLAUCOMA [None]
  - HIATUS HERNIA [None]
  - JOINT SWELLING [None]
